FAERS Safety Report 9353871 (Version 1)
Quarter: 2013Q2

REPORT INFORMATION
  Report Type: Spontaneous
  Country: FR (occurrence: FR)
  Receive Date: 20130618
  Receipt Date: 20130618
  Transmission Date: 20140414
  Serious: Yes (Other)
  Sender: FDA-Public Use
  Company Number: FR-ASTRAZENECA-2013SE42042

PATIENT
  Age: 16228 Day
  Sex: Male

DRUGS (8)
  1. INEXIUM [Suspect]
     Indication: GASTRIC ULCER
     Route: 042
     Dates: start: 20130404, end: 20130408
  2. INEXIUM [Suspect]
     Indication: GASTRIC ULCER
     Route: 042
     Dates: start: 20130412, end: 20130416
  3. INEXIUM [Suspect]
     Indication: GASTRIC ULCER
     Route: 042
     Dates: start: 20130416, end: 20130419
  4. INEXIUM [Suspect]
     Indication: GASTRIC ULCER
     Route: 042
     Dates: start: 20130419, end: 20130427
  5. NEXIUM [Suspect]
     Indication: GASTRIC ULCER
     Route: 048
     Dates: start: 20130408, end: 20130412
  6. NEXIUM [Suspect]
     Indication: GASTRIC ULCER
     Route: 048
     Dates: start: 20130501, end: 20130510
  7. PIPERACILLIN\TAZOBACTAM [Suspect]
     Route: 041
     Dates: start: 20130422, end: 20130501
  8. PIPERACILLIN\TAZOBACTAM [Suspect]
     Route: 041
     Dates: start: 20130508, end: 20130511

REACTIONS (2)
  - Confusional state [Recovered/Resolved]
  - Hallucination, visual [Recovered/Resolved]
